FAERS Safety Report 4922356-3 (Version None)
Quarter: 2006Q1

REPORT INFORMATION
  Report Type: 
  Country: None (occurrence: None)
  Receive Date: 20060224
  Receipt Date: 20050202
  Transmission Date: 20060701
  Serious: Yes (Hospitalization)
  Sender: FDA-Public Use
  Company Number: US-MERCK-0502USA00361

PATIENT
  Age: 63 Year
  Sex: Female
  Weight: 84 kg

DRUGS (14)
  1. TENORMIN [Concomitant]
     Route: 065
  2. ASPIRIN [Concomitant]
     Route: 065
  3. ARMOUR THYROID TABLETS [Concomitant]
     Route: 065
  4. ASCORBIC ACID [Concomitant]
     Route: 065
  5. PLAVIX [Concomitant]
     Route: 065
  6. LOVENOX [Concomitant]
     Route: 058
  7. NITROGLYCERIN [Concomitant]
     Route: 065
  8. VIOXX [Suspect]
     Indication: ARTHRITIS
     Route: 048
     Dates: start: 19991104, end: 20040901
  9. VIOXX [Suspect]
     Route: 065
     Dates: start: 20021209
  10. BENTYL [Concomitant]
     Route: 065
  11. XANAX [Concomitant]
     Route: 065
  12. PROTONIX [Concomitant]
     Route: 065
  13. LASIX [Concomitant]
     Route: 065
  14. COZAAR [Concomitant]
     Route: 065

REACTIONS (6)
  - ANGINA PECTORIS [None]
  - CHOLELITHIASIS [None]
  - CORONARY ARTERY DISEASE [None]
  - CORONARY ARTERY STENOSIS [None]
  - EMBOLISM [None]
  - MYOCARDIAL INFARCTION [None]
